FAERS Safety Report 14774980 (Version 7)
Quarter: 2018Q3

REPORT INFORMATION
  Report Type: Report from Study
  Country: CA (occurrence: CA)
  Receive Date: 20180418
  Receipt Date: 20180704
  Transmission Date: 20181010
  Serious: Yes (Hospitalization, Other)
  Sender: FDA-Public Use
  Company Number: CA-GLAXOSMITHKLINE-CA2017GSK194732

PATIENT
  Age: 58 Year
  Sex: Female

DRUGS (4)
  1. MEPOLIZUMAB [Suspect]
     Active Substance: MEPOLIZUMAB
     Indication: ASTHMA
     Dosage: 100 MG, Z, (ONCE MONTHLY)
     Route: 042
  2. MEPOLIZUMAB [Suspect]
     Active Substance: MEPOLIZUMAB
     Dosage: 100 MG, Z
     Route: 042
  3. MEPOLIZUMAB [Suspect]
     Active Substance: MEPOLIZUMAB
     Dosage: 100 MG, Z
     Route: 042
  4. MEPOLIZUMAB [Suspect]
     Active Substance: MEPOLIZUMAB
     Dosage: 100 MG, Z, (ONCE MONTHLY)
     Route: 042

REACTIONS (11)
  - Pyrexia [Unknown]
  - Asthma [Unknown]
  - Vomiting [Recovered/Resolved]
  - Sputum discoloured [Unknown]
  - Lower respiratory tract infection [Unknown]
  - Bacterial infection [Recovering/Resolving]
  - Malaise [Recovered/Resolved]
  - Wheezing [Unknown]
  - Lung infection [Recovering/Resolving]
  - Nausea [Recovered/Resolved]
  - Productive cough [Unknown]

NARRATIVE: CASE EVENT DATE: 20171208
